FAERS Safety Report 7088368-1 (Version None)
Quarter: 2010Q4

REPORT INFORMATION
  Report Type: 
  Country: None (occurrence: None)
  Receive Date: 20101028
  Receipt Date: 20101015
  Transmission Date: 20110411
  Serious: Yes (Other)
  Sender: FDA-Public Use
  Company Number: 2010AP002167

PATIENT
  Age: 69 Year
  Sex: Male

DRUGS (5)
  1. ENALAPRIL MALEATE [Suspect]
  2. METFORMIN HCL [Concomitant]
  3. GARCINIA CAMBOGIA [Concomitant]
  4. SERTRALINE HYDROCHLORIDE [Concomitant]
  5. HYDROCHLOROTHIAZIDE [Concomitant]

REACTIONS (2)
  - INTERSTITIAL GRANULOMATOUS DERMATITIS [None]
  - PSEUDOLYMPHOMA [None]
